FAERS Safety Report 14061751 (Version 3)
Quarter: 2018Q1

REPORT INFORMATION
  Report Type: Spontaneous
  Country: JP (occurrence: JP)
  Receive Date: 20171009
  Receipt Date: 20180222
  Transmission Date: 20180508
  Serious: Yes (Death, Other)
  Sender: FDA-Public Use
  Company Number: JP-009507513-1710JPN000624J

PATIENT
  Age: 78 Year
  Sex: Male
  Weight: 52 kg

DRUGS (11)
  1. MAGMITT [Concomitant]
     Active Substance: MAGNESIUM OXIDE
     Indication: ADENOSQUAMOUS CELL LUNG CANCER
     Dosage: 660 MG, TID
     Route: 048
  2. ETODOLAC. [Concomitant]
     Active Substance: ETODOLAC
     Indication: ADENOSQUAMOUS CELL LUNG CANCER
     Dosage: 200 MG, BID
     Route: 048
  3. OLMETEC [Concomitant]
     Active Substance: OLMESARTAN MEDOXOMIL
     Indication: ADENOSQUAMOUS CELL LUNG CANCER
     Dosage: 20 MG, QD
     Route: 048
  4. DECADRON [Concomitant]
     Active Substance: DEXAMETHASONE
     Indication: ADENOSQUAMOUS CELL LUNG CANCER
     Dosage: 0.5 MG, BID
     Route: 048
  5. LYRICA [Concomitant]
     Active Substance: PREGABALIN
     Indication: ADENOSQUAMOUS CELL LUNG CANCER
     Dosage: 100 MG, QD
     Route: 048
  6. NAUZELIN [Concomitant]
     Active Substance: DOMPERIDONE
     Indication: ADENOSQUAMOUS CELL LUNG CANCER
     Dosage: 10 MG, TID
     Route: 048
  7. KEYTRUDA [Suspect]
     Active Substance: PEMBROLIZUMAB
     Indication: ADENOSQUAMOUS CELL LUNG CANCER
     Dosage: 200 MG, Q3W
     Route: 041
     Dates: start: 20170615, end: 20170817
  8. SODIUM RABEPRAZOLE [Concomitant]
     Active Substance: RABEPRAZOLE SODIUM
     Indication: ADENOSQUAMOUS CELL LUNG CANCER
     Dosage: 10 MG, QD
     Route: 048
  9. TENORMIN [Concomitant]
     Active Substance: ATENOLOL
     Indication: ADENOSQUAMOUS CELL LUNG CANCER
     Dosage: 50 MG, QD
     Route: 048
  10. CALONAL [Concomitant]
     Active Substance: ACETAMINOPHEN
     Indication: ADENOSQUAMOUS CELL LUNG CANCER
     Dosage: 200 MG, TID
     Route: 048
  11. DAIKENCHUTO [Concomitant]
     Active Substance: HERBALS
     Indication: ADENOSQUAMOUS CELL LUNG CANCER
     Dosage: 2.5 G, TID
     Route: 048

REACTIONS (1)
  - Malignant neoplasm progression [Fatal]

NARRATIVE: CASE EVENT DATE: 20170829
